FAERS Safety Report 8174252-9 (Version None)
Quarter: 2012Q1

REPORT INFORMATION
  Report Type: 
  Country: None (occurrence: None)
  Receive Date: 20120229
  Receipt Date: 20120217
  Transmission Date: 20120608
  Serious: Yes (Hospitalization)
  Sender: FDA-Public Use
  Company Number: IT-CELGENEUS-083-21880-11122973

PATIENT

DRUGS (1)
  1. REVLIMID [Suspect]
     Dosage: 5 MILLIGRAM
     Route: 048
     Dates: start: 20111011, end: 20111028

REACTIONS (4)
  - C-REACTIVE PROTEIN INCREASED [None]
  - LIVER FUNCTION TEST ABNORMAL [None]
  - NEUTROPENIA [None]
  - PRODUCTIVE COUGH [None]
